FAERS Safety Report 17712266 (Version 2)
Quarter: 2020Q2

REPORT INFORMATION
  Report Type: Spontaneous
  Country: SK (occurrence: SK)
  Receive Date: 20200427
  Receipt Date: 20200501
  Transmission Date: 20200714
  Serious: Yes (Other)
  Sender: FDA-Public Use
  Company Number: SK-SA-2020SA105996

PATIENT
  Age: 69 Year
  Sex: Female

DRUGS (6)
  1. EUTHYROX [Concomitant]
     Active Substance: LEVOTHYROXINE SODIUM
     Route: 065
  2. CEREZYME [Suspect]
     Active Substance: IMIGLUCERASE
     Dosage: 60 IU/KG
     Route: 065
     Dates: start: 20101201
  3. URAPIDIL STRAGEN [Concomitant]
     Active Substance: URAPIDIL HYDROCHLORIDE
     Route: 065
  4. LACIPIL [Concomitant]
     Active Substance: LACIDIPINE
     Dosage: UNK
     Route: 065
  5. MOXONIDIN [Concomitant]
     Active Substance: MOXONIDINE
     Dosage: 0.2 MG
     Route: 065
  6. CO VALSACOR [Concomitant]
     Route: 065

REACTIONS (3)
  - Hypothyroidism [Unknown]
  - Breast cancer [Unknown]
  - Hypertension [Unknown]

NARRATIVE: CASE EVENT DATE: 20200206
